FAERS Safety Report 24153019 (Version 1)
Quarter: 2024Q3

REPORT INFORMATION
  Report Type: Report from Study
  Country: CA (occurrence: CA)
  Receive Date: 20240730
  Receipt Date: 20240730
  Transmission Date: 20241017
  Serious: Yes (Other)
  Sender: BIOCON
  Company Number: CA-BIOCON BIOLOGICS LIMITED-BBL2024005516

PATIENT

DRUGS (1)
  1. HULIO [Suspect]
     Active Substance: ADALIMUMAB-FKJP
     Indication: Psoriatic arthropathy
     Dosage: 40 MG, Q2W (SOLUTION)
     Route: 058

REACTIONS (5)
  - Chest discomfort [Unknown]
  - Erythema [Unknown]
  - Pruritus [Unknown]
  - Hypertension [Unknown]
  - Chest pain [Unknown]
